FAERS Safety Report 13716851 (Version 1)
Quarter: 2017Q3

REPORT INFORMATION
  Report Type: Report from Study
  Country: CO (occurrence: CO)
  Receive Date: 20170705
  Receipt Date: 20170705
  Transmission Date: 20171127
  Serious: Yes (Hospitalization)
  Sender: FDA-Public Use
  Company Number: CO-AMGEN-COLSL2017000214

PATIENT
  Age: 74 Year
  Sex: Male

DRUGS (2)
  1. VECTIBIX [Suspect]
     Active Substance: PANITUMUMAB
     Indication: COLORECTAL CANCER METASTATIC
     Dosage: 250 MCG, QWK
     Route: 058
  2. VECTIBIX [Suspect]
     Active Substance: PANITUMUMAB
     Dosage: 470 MG, Q2WK (BIWEEKLY)
     Route: 042
     Dates: start: 20160902

REACTIONS (7)
  - Haematuria [Unknown]
  - Acne [Not Recovered/Not Resolved]
  - Nausea [Recovering/Resolving]
  - Incorrect route of drug administration [Unknown]
  - Discomfort [Recovering/Resolving]
  - Rash [Not Recovered/Not Resolved]
  - Dermatitis acneiform [Recovering/Resolving]

NARRATIVE: CASE EVENT DATE: 20170317
